FAERS Safety Report 18106611 (Version 2)
Quarter: 2020Q3

REPORT INFORMATION
  Report Type: Spontaneous
  Country: US (occurrence: US)
  Receive Date: 20200804
  Receipt Date: 20200824
  Transmission Date: 20201103
  Serious: No
  Sender: FDA-Public Use
  Company Number: US-ASTRAZENECA-2020SE94776

PATIENT
  Age: 26269 Day
  Sex: Female

DRUGS (3)
  1. FASENRA [Suspect]
     Active Substance: BENRALIZUMAB
     Dosage: INCREASED TO EVERY 4 WEEKS
     Route: 058
  2. FASENRA [Suspect]
     Active Substance: BENRALIZUMAB
     Dosage: EVERY 4 WEEKS
     Route: 058
     Dates: start: 20190325
  3. FASENRA [Suspect]
     Active Substance: BENRALIZUMAB
     Dosage: DECREASED TO EVERY 8 WEEKS
     Route: 058

REACTIONS (6)
  - Drug intolerance [Recovered/Resolved]
  - Device breakage [Unknown]
  - Illness [Recovered/Resolved]
  - Device issue [Recovered/Resolved]
  - Intentional product misuse [Recovered/Resolved]
  - Intentional device misuse [Unknown]

NARRATIVE: CASE EVENT DATE: 20190827
